FAERS Safety Report 5606159-2 (Version None)
Quarter: 2008Q1

REPORT INFORMATION
  Report Type: 
  Country: None (occurrence: None)
  Receive Date: 20080129
  Receipt Date: 20061211
  Transmission Date: 20080703
  Serious: No
  Sender: FDA-Public Use
  Company Number: A0631351A

PATIENT
  Age: 39 Year
  Sex: Female

DRUGS (1)
  1. BUPROPION HCL [Suspect]
     Indication: DEPRESSION
     Dosage: 150MG UNKNOWN
     Route: 048

REACTIONS (1)
  - CYSTITIS INTERSTITIAL [None]
